FAERS Safety Report 5693438-6 (Version None)
Quarter: 2008Q2

REPORT INFORMATION
  Report Type: 
  Country: None (occurrence: None)
  Receive Date: 20080403
  Receipt Date: 20080323
  Transmission Date: 20081010
  Serious: Yes (Hospitalization, Other)
  Sender: FDA-Public Use
  Company Number: JP-AMGEN-US227675

PATIENT
  Sex: Male
  Weight: 50 kg

DRUGS (3)
  1. KINERET [Suspect]
     Indication: PRE-EXISTING DISEASE
     Route: 058
     Dates: start: 20060810, end: 20080131
  2. IBUPROFEN [Concomitant]
     Route: 065
  3. METHOTREXATE [Concomitant]
     Route: 065
     Dates: start: 20080110

REACTIONS (11)
  - ANAPHYLACTIC REACTION [None]
  - ANTIBODY TEST POSITIVE [None]
  - CHRONIC INFANTILE NEUROLOGICAL CUTANEOUS AND ARTICULAR SYNDROME [None]
  - CONJUNCTIVAL HYPERAEMIA [None]
  - DYSPNOEA [None]
  - HEADACHE [None]
  - INFECTION [None]
  - INJECTION SITE PAIN [None]
  - MALAISE [None]
  - RHINORRHOEA [None]
  - URTICARIA [None]
